FAERS Safety Report 5135807-9 (Version None)
Quarter: 2006Q4

REPORT INFORMATION
  Report Type: 
  Country: None (occurrence: None)
  Receive Date: 20061024
  Receipt Date: 20061024
  Transmission Date: 20070319
  Serious: Yes (Hospitalization)
  Sender: FDA-Public Use
  Company Number: None

PATIENT
  Age: 80 Year
  Sex: Female

DRUGS (1)
  1. COUMADIN [Suspect]
     Dosage: PO
     Route: 048

REACTIONS (5)
  - APHASIA [None]
  - CONVULSION [None]
  - EYELID PTOSIS [None]
  - FALL [None]
  - SUBARACHNOID HAEMORRHAGE [None]
